FAERS Safety Report 8408793-3 (Version None)
Quarter: 2012Q2

REPORT INFORMATION
  Report Type: 
  Country: None (occurrence: None)
  Receive Date: 20120604
  Receipt Date: 20120527
  Transmission Date: 20120825
  Serious: No
  Sender: FDA-Public Use
  Company Number: US-BAYER-2012-054471

PATIENT
  Age: 22 Year
  Sex: Female
  Weight: 75 kg

DRUGS (1)
  1. ALEVE (CAPLET) [Suspect]
     Indication: TOOTHACHE
     Dosage: DAILY DOSE 6 DF
     Route: 048
     Dates: start: 20120527

REACTIONS (2)
  - TOOTHACHE [None]
  - SLEEP DISORDER [None]
